FAERS Safety Report 19697171 (Version 1)
Quarter: 2021Q3

REPORT INFORMATION
  Report Type: Spontaneous
  Country: US (occurrence: US)
  Receive Date: 20210813
  Receipt Date: 20210813
  Transmission Date: 20211014
  Serious: Yes (Other)
  Sender: FDA-Public Use
  Company Number: US-MYLANLABS-2021M1050243

PATIENT
  Age: 65 Year
  Sex: Female

DRUGS (2)
  1. OLANZAPINE. [Suspect]
     Active Substance: OLANZAPINE
     Indication: BURNING MOUTH SYNDROME
     Dosage: 5 MILLIGRAM, QD
     Route: 065
     Dates: start: 202010
  2. QUETIAPINE. [Suspect]
     Active Substance: QUETIAPINE
     Indication: BIPOLAR I DISORDER
     Dosage: 300 MILLIGRAM, QD
     Route: 065
     Dates: start: 2020, end: 2020

REACTIONS (4)
  - Off label use [Unknown]
  - Sleep disorder [Unknown]
  - Burning mouth syndrome [Recovered/Resolved]
  - Emotional distress [Unknown]

NARRATIVE: CASE EVENT DATE: 2020
